FAERS Safety Report 25295788 (Version 6)
Quarter: 2025Q3

REPORT INFORMATION
  Report Type: Spontaneous
  Country: US (occurrence: US)
  Receive Date: 20250511
  Receipt Date: 20250725
  Transmission Date: 20251021
  Serious: Yes (Other)
  Sender: SANOFI AVENTIS
  Company Number: US-SA-2025SA133300

PATIENT
  Age: 73 Year
  Sex: Female

DRUGS (3)
  1. DUPIXENT [Suspect]
     Active Substance: DUPILUMAB
     Indication: Dermatitis atopic
     Route: 065
     Dates: start: 202504, end: 202504
  2. DUPIXENT [Suspect]
     Active Substance: DUPILUMAB
     Dosage: 300 MG, QOW
     Route: 065
     Dates: start: 2025
  3. NYSTATIN [Suspect]
     Active Substance: NYSTATIN

REACTIONS (6)
  - Nephrolithiasis [Unknown]
  - Eye disorder [Unknown]
  - Urticaria [Unknown]
  - Urinary tract infection [Unknown]
  - Injection site swelling [Unknown]
  - Fungal infection [Unknown]

NARRATIVE: CASE EVENT DATE: 20250101
